FAERS Safety Report 16038914 (Version 2)
Quarter: 2021Q3

REPORT INFORMATION
  Report Type: Spontaneous
  Country: US (occurrence: US)
  Receive Date: 20190306
  Receipt Date: 20210715
  Transmission Date: 20211014
  Serious: Yes (Other)
  Sender: FDA-Public Use
  Company Number: PHEH2019US009588

PATIENT
  Sex: Male

DRUGS (1)
  1. TASIGNA [Suspect]
     Active Substance: NILOTINIB
     Indication: CHRONIC MYELOID LEUKAEMIA
     Dosage: 02 DF, BID
     Route: 048
     Dates: start: 201402, end: 201812

REACTIONS (14)
  - Depression [Unknown]
  - Anxiety [Unknown]
  - Syncope [Unknown]
  - Bronchitis [Unknown]
  - Emotional distress [Unknown]
  - Coronary artery stenosis [Unknown]
  - Peripheral vascular disorder [Unknown]
  - Iron deficiency [Unknown]
  - Arteriosclerosis [Unknown]
  - Peripheral arterial occlusive disease [Unknown]
  - Cholelithiasis [Unknown]
  - Acute myocardial infarction [Unknown]
  - Injury [Unknown]
  - Pain [Unknown]
